FAERS Safety Report 8974707 (Version 3)
Quarter: 2013Q1

REPORT INFORMATION
  Report Type: Spontaneous
  Country: JP (occurrence: JP)
  Receive Date: 20121219
  Receipt Date: 20130326
  Transmission Date: 20140127
  Serious: Yes (Other)
  Sender: FDA-Public Use
  Company Number: JP-PFIZER INC-2012320539

PATIENT
  Age: 69 Year
  Sex: Male

DRUGS (5)
  1. CHAMPIX [Suspect]
     Indication: SMOKING CESSATION THERAPY
     Dosage: 2 MG, UNK
     Route: 048
     Dates: start: 20121020, end: 20121205
  2. CADUET [Concomitant]
     Indication: HYPERTENSION
     Dosage: 5 MG/5 MG ONCE A DAY
     Route: 048
     Dates: start: 20101005
  3. CADUET [Concomitant]
     Indication: DYSLIPIDAEMIA
  4. BLOPRESS [Concomitant]
     Indication: HYPERTENSION
     Dosage: 2 MG DAILY
     Route: 048
     Dates: start: 20070629
  5. LENDORMIN [Concomitant]
     Indication: INSOMNIA
     Dosage: UNK
     Route: 048
     Dates: start: 20070629

REACTIONS (1)
  - Drug eruption [Recovered/Resolved]
